FAERS Safety Report 13120097 (Version 1)
Quarter: 2017Q1

REPORT INFORMATION
  Report Type: Report from Study
  Country: BR (occurrence: BR)
  Receive Date: 20170117
  Receipt Date: 20170117
  Transmission Date: 20170428
  Serious: Yes (Other)
  Sender: FDA-Public Use
  Company Number: BR-ALEXION PHARMACEUTICALS INC.-A201609955

PATIENT
  Age: 33 Year
  Sex: Male

DRUGS (2)
  1. SOLIRIS [Suspect]
     Active Substance: ECULIZUMAB
     Indication: PAROXYSMAL NOCTURNAL HAEMOGLOBINURIA
     Dosage: UNK
     Route: 042
     Dates: start: 20120426
  2. SOLIRIS [Suspect]
     Active Substance: ECULIZUMAB
     Dosage: UNK EVERY 13 DAYS
     Route: 042
     Dates: start: 20130201

REACTIONS (3)
  - Fatigue [Unknown]
  - Haemolysis [Unknown]
  - Haemoglobinuria [Unknown]
